APPROVED DRUG PRODUCT: EXTRA-STRENGTH AIM
Active Ingredient: SODIUM MONOFLUOROPHOSPHATE
Strength: 1.2%
Dosage Form/Route: GEL;DENTAL
Application: N019518 | Product #002
Applicant: CHESEBROUGH PONDS INC
Approved: Aug 6, 1986 | RLD: No | RS: No | Type: DISCN